FAERS Safety Report 10775670 (Version 1)
Quarter: 2015Q1

REPORT INFORMATION
  Report Type: Other
  Country: US (occurrence: US)
  Receive Date: 20150209
  Receipt Date: 20150209
  Transmission Date: 20150721
  Serious: Yes (Death)
  Sender: FDA-Public Use
  Company Number: US-FRI-1000074324

PATIENT
  Age: 43 Year
  Sex: Female

DRUGS (6)
  1. ETHANOL [Suspect]
     Active Substance: ALCOHOL
  2. CHLORDIAZEPOXIDE [Suspect]
     Active Substance: CHLORDIAZEPOXIDE
  3. DIPHENHYDRAMINE [Suspect]
     Active Substance: DIPHENHYDRAMINE
  4. CITALOPRAM [Suspect]
     Active Substance: CITALOPRAM HYDROBROMIDE
  5. OXYCODONE [Suspect]
     Active Substance: OXYCODONE
  6. METOPROLOL [Suspect]
     Active Substance: METOPROLOL

REACTIONS (1)
  - Drug abuse [Fatal]
